FAERS Safety Report 7984498-8 (Version None)
Quarter: 2011Q4

REPORT INFORMATION
  Report Type: 
  Country: None (occurrence: None)
  Receive Date: 20111216
  Receipt Date: 20111209
  Transmission Date: 20120403
  Serious: Yes (Hospitalization)
  Sender: FDA-Public Use
  Company Number: US-SHIRE-ALL1-2011-04890

PATIENT
  Sex: Female

DRUGS (2)
  1. LIALDA [Suspect]
     Dosage: 4.8 G, 1X/DAY:QD (FOUR 1.2 G TABLETS)
     Route: 048
     Dates: start: 20111101
  2. LIALDA [Suspect]
     Indication: COLITIS
     Dosage: 1.2 G, 1X/DAY:QD
     Route: 048
     Dates: start: 20090101, end: 20111101

REACTIONS (6)
  - PLATELET COUNT DECREASED [None]
  - VITAMIN B COMPLEX DEFICIENCY [None]
  - DIARRHOEA HAEMORRHAGIC [None]
  - MALNUTRITION [None]
  - ABNORMAL LOSS OF WEIGHT [None]
  - CONFUSIONAL STATE [None]
